FAERS Safety Report 16541713 (Version 2)
Quarter: 2019Q3

REPORT INFORMATION
  Report Type: Spontaneous
  Country: US (occurrence: US)
  Receive Date: 20190708
  Receipt Date: 20190807
  Transmission Date: 20191004
  Serious: Yes (Other)
  Sender: FDA-Public Use
  Company Number: US-JNJFOC-20190633548

PATIENT
  Sex: Male
  Weight: 64.01 kg

DRUGS (4)
  1. DURAGESIC [Suspect]
     Active Substance: FENTANYL
     Dosage: 75 MCG
     Route: 062
     Dates: end: 2019
  2. DURAGESIC [Suspect]
     Active Substance: FENTANYL
     Dosage: 12.5 MCG
     Route: 062
     Dates: start: 2019, end: 2019
  3. DURAGESIC [Suspect]
     Active Substance: FENTANYL
     Dosage: 75 MCG/HR
     Route: 062
     Dates: start: 2019
  4. DURAGESIC [Suspect]
     Active Substance: FENTANYL
     Indication: CANCER PAIN
     Dosage: 50 MCG/ HOUR
     Route: 062

REACTIONS (5)
  - Drug ineffective [Recovered/Resolved]
  - Hypersensitivity [Recovered/Resolved]
  - Arthralgia [Not Recovered/Not Resolved]
  - Gait inability [Recovered/Resolved]
  - Metastatic neoplasm [Not Recovered/Not Resolved]

NARRATIVE: CASE EVENT DATE: 2019
